FAERS Safety Report 13661304 (Version 1)
Quarter: 2017Q2

REPORT INFORMATION
  Report Type: Report from Study
  Country: US (occurrence: US)
  Receive Date: 20170616
  Receipt Date: 20170616
  Transmission Date: 20170830
  Serious: No
  Sender: FDA-Public Use
  Company Number: US-US WORLDMEDS, LLC-USW201701-000053

PATIENT
  Age: 74 Year
  Sex: Female
  Weight: 62.59 kg

DRUGS (6)
  1. ATENOLOL. [Concomitant]
     Active Substance: ATENOLOL
  2. APOKYN [Suspect]
     Active Substance: APOMORPHINE HYDROCHLORIDE
     Indication: PARKINSON^S DISEASE
     Route: 058
     Dates: start: 20161024
  3. SINEMET [Concomitant]
     Active Substance: CARBIDOPA\LEVODOPA
  4. SIMVASTATIN. [Concomitant]
     Active Substance: SIMVASTATIN
  5. TIGAN [Concomitant]
     Active Substance: TRIMETHOBENZAMIDE HYDROCHLORIDE
  6. CITALOPRAM [Concomitant]
     Active Substance: CITALOPRAM HYDROBROMIDE

REACTIONS (2)
  - Injection site bruising [Recovered/Resolved]
  - Injection site erosion [Not Recovered/Not Resolved]

NARRATIVE: CASE EVENT DATE: 20161201
